FAERS Safety Report 17696803 (Version 1)
Quarter: 2020Q2

REPORT INFORMATION
  Report Type: Spontaneous
  Country: US (occurrence: US)
  Receive Date: 20200423
  Receipt Date: 20200423
  Transmission Date: 20200714
  Serious: Yes (Hospitalization, Other)
  Sender: FDA-Public Use
  Company Number: US-TEVA-2020-US-1224678

PATIENT
  Age: 41 Year
  Sex: Female

DRUGS (12)
  1. LEVETIRACETAM. [Concomitant]
     Active Substance: LEVETIRACETAM
     Route: 065
  2. DEXAMETHASONE. [Concomitant]
     Active Substance: DEXAMETHASONE
     Indication: SEIZURE
     Route: 065
  3. VORICONAZOLE. [Suspect]
     Active Substance: VORICONAZOLE
     Indication: BLASTOMYCOSIS
     Dosage: 600 MILLIGRAM DAILY;
     Route: 048
  4. LEVETIRACETAM. [Concomitant]
     Active Substance: LEVETIRACETAM
     Route: 065
  5. TRIMETOPRIM/SULFAMETAXAZOLE [Concomitant]
     Indication: ENCEPHALITIS
     Route: 065
  6. AMPHOTERICIN-B-LIPOSOMAL [Suspect]
     Active Substance: AMPHOTERICIN B
     Indication: BLASTOMYCOSIS
     Route: 042
  7. CETIRIZINE [Concomitant]
     Active Substance: CETIRIZINE HYDROCHLORIDE
     Route: 065
  8. AZITHROMYCIN ANHYDROUS. [Concomitant]
     Active Substance: AZITHROMYCIN ANHYDROUS
     Indication: ENCEPHALITIS
     Route: 065
  9. MILTEFOSINE [Concomitant]
     Active Substance: MILTEFOSINE
     Indication: ENCEPHALITIS
     Route: 065
  10. THORAZINE [Concomitant]
     Active Substance: CHLORPROMAZINE
     Indication: ENCEPHALITIS
     Route: 065
  11. POTASSIUM [Suspect]
     Active Substance: POTASSIUM
     Indication: HYPOKALAEMIA
     Route: 048
  12. LEVOTHYROXINE. [Concomitant]
     Active Substance: LEVOTHYROXINE
     Route: 065

REACTIONS (5)
  - Brain abscess [Recovered/Resolved]
  - Drug ineffective [Unknown]
  - Pancytopenia [Recovered/Resolved]
  - Neutropenia [Recovered/Resolved]
  - Hypokalaemia [Recovered/Resolved]
